FAERS Safety Report 21112536 (Version 1)
Quarter: 2022Q3

REPORT INFORMATION
  Report Type: Spontaneous
  Country: US (occurrence: None)
  Receive Date: 20220721
  Receipt Date: 20220721
  Transmission Date: 20221027
  Serious: No
  Sender: FDA-Public Use
  Company Number: None

PATIENT
  Age: 26 Year
  Sex: Female
  Weight: 76.5 kg

DRUGS (7)
  1. MAGNESIUM CITRATE LEMON [Suspect]
     Active Substance: MAGNESIUM CITRATE
     Indication: Constipation
     Dosage: OTHER QUANTITY : 1 BOTTLE;?FREQUENCY : EVERY 4 HOURS;?
     Route: 048
     Dates: start: 20220422
  2. Vitamins b12 [Concomitant]
  3. Vitamins d [Concomitant]
  4. colon broom [Concomitant]
  5. fiber gummies [Concomitant]
  6. UNSPECIFIED INGREDIENT [Concomitant]
     Active Substance: UNSPECIFIED INGREDIENT
  7. ALLEGRA [Concomitant]
     Active Substance: FEXOFENADINE HYDROCHLORIDE

REACTIONS (2)
  - Pain [None]
  - Condition aggravated [None]

NARRATIVE: CASE EVENT DATE: 20220422
